FAERS Safety Report 6060169-2 (Version None)
Quarter: 2009Q1

REPORT INFORMATION
  Report Type: 
  Country: None (occurrence: None)
  Receive Date: 20090128
  Receipt Date: 20090119
  Transmission Date: 20090719
  Serious: Yes (Other)
  Sender: FDA-Public Use
  Company Number: 2009AP000246

PATIENT
  Age: 56 Year
  Sex: Female

DRUGS (4)
  1. RANITIDINE HYDROCHLORIDE [Suspect]
     Indication: PRURITUS
  2. ERYTHROPED (ERYTHROMYCIN ETHYLSUCCINATE) [Suspect]
     Indication: INFECTED BITES
     Dosage: 500 MG;PO;QID
     Route: 048
     Dates: start: 20080729, end: 20080731
  3. LORATADINE [Suspect]
     Indication: PRURITUS
  4. ERYTHROMYCIN [Concomitant]

REACTIONS (7)
  - ALANINE AMINOTRANSFERASE INCREASED [None]
  - ASPARTATE AMINOTRANSFERASE INCREASED [None]
  - BURNING SENSATION [None]
  - CHOLESTASIS [None]
  - DYSGEUSIA [None]
  - FEELING ABNORMAL [None]
  - TONGUE DISCOLOURATION [None]
